FAERS Safety Report 4504628-X (Version None)
Quarter: 2004Q4

REPORT INFORMATION
  Report Type: 
  Country: None (occurrence: None)
  Receive Date: 20041116
  Receipt Date: 20041112
  Transmission Date: 20050328
  Serious: Yes (Hospitalization)
  Sender: FDA-Public Use
  Company Number: TCI2004A03276

PATIENT
  Age: 77 Year
  Sex: Male

DRUGS (2)
  1. LANSAP 800 (LANSOPRAZOLE, CLARITHROMYCIN, AMOXICILLIN) (PREPARATION FO [Suspect]
     Indication: HELICOBACTER INFECTION
     Dosage: 1 CARD (0.5 CARD, 2 IN 1 D) PER ORAL
     Route: 048
     Dates: start: 20040819, end: 20040821
  2. DIAZEPAM [Suspect]
     Dosage: PER ORAL
     Route: 048

REACTIONS (3)
  - DEPRESSED LEVEL OF CONSCIOUSNESS [None]
  - HELICOBACTER INFECTION [None]
  - ULCER [None]
